FAERS Safety Report 7118417-3 (Version None)
Quarter: 2010Q4

REPORT INFORMATION
  Report Type: 
  Country: None (occurrence: None)
  Receive Date: 20101123
  Receipt Date: 20101111
  Transmission Date: 20110411
  Serious: Yes (Hospitalization)
  Sender: FDA-Public Use
  Company Number: US-AMGEN-USACT2010002625

PATIENT

DRUGS (22)
  1. CINACALCET HYDROCHLORIDE [Suspect]
     Indication: HYPERPARATHYROIDISM SECONDARY
     Dosage: UNK
  2. ZEMPLAR [Concomitant]
     Dosage: UNK UNK, 3 TIMES/WK
     Route: 042
  3. CALCIUM CARBONATE [Concomitant]
     Dosage: UNK UNK, BID
  4. EPOGEN [Concomitant]
  5. BENADRYL [Concomitant]
     Dosage: 25 MG, PRN
  6. FISH OIL [Concomitant]
     Dosage: 1000 MG, QD
  7. LORATADINE [Concomitant]
     Dosage: 10 MG, PRN
  8. PHOSLO [Concomitant]
     Dosage: 660 MG, BID
  9. NORVASC [Concomitant]
     Dosage: 2.5 MG, BID
  10. TUMS                               /00108001/ [Concomitant]
     Dosage: UNK UNK, PRN
  11. LOPERAMIDE [Concomitant]
     Dosage: 2 MG, PRN
  12. GEMFIBROZIL [Concomitant]
     Dosage: 600 MG, QD
  13. LISINOPRIL [Concomitant]
     Dosage: 40 MG, QD
  14. TOPROL-XL                          /00376902/ [Concomitant]
     Dosage: 12.5 MG, QD
  15. ASPIRIN [Concomitant]
     Dosage: 325 MG, QD
  16. GLYBURIDE [Concomitant]
     Dosage: 5 MG, BID
  17. PROZAC                             /00724401/ [Concomitant]
     Dosage: 20 MG, QD
  18. PLETAL [Concomitant]
     Dosage: 100 MG, QD
  19. DILANTIN [Concomitant]
     Dosage: 100 MG, UNK
  20. ZOCOR [Concomitant]
     Dosage: 20 MG, QHS
  21. LASIX [Concomitant]
     Dosage: 80 MG, BID
  22. PRILOSEC [Concomitant]
     Dosage: UNK UNK, QD

REACTIONS (1)
  - GASTROENTERITIS [None]
